FAERS Safety Report 11810308 (Version 3)
Quarter: 2016Q3

REPORT INFORMATION
  Report Type: Spontaneous
  Country: IT (occurrence: IT)
  Receive Date: 20151208
  Receipt Date: 20160822
  Transmission Date: 20161109
  Serious: Yes (Life-Threatening)
  Sender: FDA-Public Use
  Company Number: IT-MYLANLABS-2015M1043222

PATIENT

DRUGS (4)
  1. VASORETIC [Suspect]
     Active Substance: ENALAPRIL MALEATE\HYDROCHLOROTHIAZIDE
     Indication: HYPERTENSION
     Dosage: UNK
     Dates: start: 20060101
  2. GLIBOMET [Interacting]
     Active Substance: GLYBURIDE\METFORMIN HYDROCHLORIDE
     Indication: DIABETES MELLITUS
     Dosage: 3 DF, QD
     Route: 048
     Dates: start: 20040101, end: 20151121
  3. FUROSEMIDE. [Suspect]
     Active Substance: FUROSEMIDE
     Indication: HYPERTENSION
     Dosage: 25 MG, UNK
     Route: 048
     Dates: start: 20090101
  4. METFORMIN [Suspect]
     Active Substance: METFORMIN HYDROCHLORIDE
     Indication: DIABETES MELLITUS
     Dosage: 1000 MG, QD
     Route: 048
     Dates: start: 20120101, end: 20151121

REACTIONS (5)
  - Vomiting [Recovering/Resolving]
  - Dehydration [Recovering/Resolving]
  - Drug interaction [Recovering/Resolving]
  - Lactic acidosis [Recovering/Resolving]
  - Diarrhoea [Recovering/Resolving]

NARRATIVE: CASE EVENT DATE: 20151121
